FAERS Safety Report 6843129-0 (Version None)
Quarter: 2010Q3

REPORT INFORMATION
  Report Type: 
  Country: None (occurrence: None)
  Receive Date: 20100715
  Receipt Date: 20100707
  Transmission Date: 20110219
  Serious: Yes (Hospitalization)
  Sender: FDA-Public Use
  Company Number: US-BIOGENIDEC-2010BI023312

PATIENT
  Age: 66 Year
  Sex: Female

DRUGS (4)
  1. AVONEX [Suspect]
     Indication: MULTIPLE SCLEROSIS
     Route: 030
     Dates: start: 20001003, end: 20070101
  2. AVONEX [Suspect]
     Route: 030
     Dates: start: 20100201
  3. METFORMIN HCL [Concomitant]
     Indication: DIABETES MELLITUS
  4. LITHIUM [Concomitant]

REACTIONS (15)
  - APHASIA [None]
  - CHEST PAIN [None]
  - CHILLS [None]
  - COORDINATION ABNORMAL [None]
  - DIABETES MELLITUS [None]
  - DRY MOUTH [None]
  - DYSPNOEA [None]
  - FALL [None]
  - GAIT DISTURBANCE [None]
  - INFLUENZA LIKE ILLNESS [None]
  - MOBILITY DECREASED [None]
  - MULTIPLE SCLEROSIS [None]
  - MULTIPLE SCLEROSIS RELAPSE [None]
  - NYSTAGMUS [None]
  - SPEECH DISORDER [None]
